FAERS Safety Report 18617738 (Version 5)
Quarter: 2021Q1

REPORT INFORMATION
  Report Type: Spontaneous
  Country: BR (occurrence: BR)
  Receive Date: 20201215
  Receipt Date: 20210325
  Transmission Date: 20210419
  Serious: Yes (Hospitalization, Other)
  Sender: FDA-Public Use
  Company Number: BR-BAYER-2020-274692

PATIENT
  Age: 30 Year
  Sex: Female

DRUGS (2)
  1. MIRENA [Suspect]
     Active Substance: LEVONORGESTREL
     Indication: ENDOMETRIOSIS
     Dosage: MIRENA 20 ?G PER DAY, CONTINUOUSLY
     Route: 015
     Dates: start: 20200128, end: 20201130
  2. AMITRIPTILINA [AMITRIPTYLINE HYDROCHLORIDE] [Concomitant]
     Active Substance: AMITRIPTYLINE HYDROCHLORIDE
     Indication: ENDOMETRIOSIS
     Dates: start: 202012

REACTIONS (6)
  - Device breakage [Unknown]
  - Embedded device [None]
  - Pelvic discomfort [Recovering/Resolving]
  - Off label use of device [None]
  - Abdominal pain [Recovering/Resolving]
  - Device use issue [None]

NARRATIVE: CASE EVENT DATE: 20200128
